FAERS Safety Report 6554837-3 (Version None)
Quarter: 2010Q1

REPORT INFORMATION
  Report Type: 
  Country: None (occurrence: None)
  Receive Date: 20100127
  Receipt Date: 20100122
  Transmission Date: 20100710
  Serious: Yes (Life-Threatening, Other)
  Sender: FDA-Public Use
  Company Number: FR-GILEAD-2010-0026635

PATIENT
  Sex: Female

DRUGS (2)
  1. TRUVADA [Suspect]
     Indication: HIV INFECTION
     Route: 048
     Dates: start: 20060719, end: 20090520
  2. KALETRA [Suspect]
     Indication: HIV INFECTION
     Dates: start: 20060719

REACTIONS (4)
  - FANCONI SYNDROME ACQUIRED [None]
  - HYPOKALAEMIA [None]
  - METABOLIC ACIDOSIS [None]
  - OSTEOMALACIA [None]
